FAERS Safety Report 8349699-8 (Version None)
Quarter: 2012Q2

REPORT INFORMATION
  Report Type: 
  Country: None (occurrence: None)
  Receive Date: 20120510
  Receipt Date: 20120508
  Transmission Date: 20120825
  Serious: Yes (Other)
  Sender: FDA-Public Use
  Company Number: PHHY2012JP035346

PATIENT
  Age: 16 Year
  Sex: Female
  Weight: 28 kg

DRUGS (2)
  1. DEFERASIROX [Suspect]
     Indication: HAEMOCHROMATOSIS
     Route: 048
  2. BLOOD TRANSFUSION, AUXILIARY PRODUCTS [Concomitant]

REACTIONS (4)
  - FAILURE TO THRIVE [None]
  - HEPATIC FUNCTION ABNORMAL [None]
  - HYPOPITUITARISM [None]
  - INSULIN-LIKE GROWTH FACTOR DECREASED [None]
